FAERS Safety Report 7310690-1 (Version None)
Quarter: 2011Q1

REPORT INFORMATION
  Report Type: 
  Country: None (occurrence: None)
  Receive Date: 20110210
  Receipt Date: 20110131
  Transmission Date: 20110831
  Serious: Yes (Other)
  Sender: FDA-Public Use
  Company Number: 026621

PATIENT
  Sex: Female

DRUGS (2)
  1. CIMZIA [Suspect]
     Indication: CROHN'S DISEASE
     Dosage: (400 MG 2X/WEEK SUBCUTANEOUS)
     Route: 058
     Dates: start: 20110125
  2. CIMZIA [Suspect]

REACTIONS (4)
  - NASOPHARYNGITIS [None]
  - MUSCLE SPASMS [None]
  - INJECTION SITE REACTION [None]
  - ASTHMA [None]
